FAERS Safety Report 4930198-8 (Version None)
Quarter: 2006Q1

REPORT INFORMATION
  Report Type: 
  Country: None (occurrence: None)
  Receive Date: 20060302
  Receipt Date: 20060224
  Transmission Date: 20060701
  Serious: Yes (Death)
  Sender: FDA-Public Use
  Company Number: FR-AVENTIS-200610813FR

PATIENT
  Sex: Female

DRUGS (2)
  1. TAXOTERE [Suspect]
     Indication: BREAST CANCER
  2. ANTIVIRALS FOR SYSTEMIC USE [Suspect]
     Indication: HIV INFECTION

REACTIONS (2)
  - DRUG INTERACTION [None]
  - FEBRILE NEUTROPENIA [None]
